FAERS Safety Report 5505319-9 (Version None)
Quarter: 2007Q4

REPORT INFORMATION
  Report Type: 
  Country: None (occurrence: None)
  Receive Date: 20071102
  Receipt Date: 20071023
  Transmission Date: 20080405
  Serious: Yes (Other)
  Sender: FDA-Public Use
  Company Number: B0489928A

PATIENT
  Age: 59 Year
  Sex: Female
  Weight: 109 kg

DRUGS (5)
  1. AVANDIA [Suspect]
     Dosage: 4MG VARIABLE DOSE
     Route: 048
  2. LEVOTHYROXINE SODIUM [Concomitant]
     Indication: HYPOTHYROIDISM
     Dosage: 175MG PER DAY
     Route: 048
     Dates: start: 20010825
  3. ROSUVASTATIN [Concomitant]
     Dosage: 10MG PER DAY
     Route: 048
     Dates: start: 20050309
  4. METFORMIN HCL [Concomitant]
     Dosage: 500MG PER DAY
     Dates: start: 20060420
  5. GLICLAZIDE [Concomitant]
     Route: 048
     Dates: start: 20050117

REACTIONS (4)
  - CELLULITIS [None]
  - DRUG INEFFECTIVE [None]
  - OEDEMA PERIPHERAL [None]
  - RASH [None]
